FAERS Safety Report 24412051 (Version 1)
Quarter: 2024Q4

REPORT INFORMATION
  Report Type: Spontaneous
  Country: US (occurrence: None)
  Receive Date: 20241008
  Receipt Date: 20241008
  Transmission Date: 20250114
  Serious: Yes (Hospitalization)
  Sender: Public
  Company Number: None

PATIENT
  Age: 71 Year
  Sex: Male
  Weight: 81.7 kg

DRUGS (2)
  1. APALUTAMIDE [Suspect]
     Active Substance: APALUTAMIDE
     Dates: end: 20240320
  2. LEUPROLIDE ACETATE [Suspect]
     Active Substance: LEUPROLIDE ACETATE
     Dates: end: 20240229

REACTIONS (5)
  - Mobility decreased [None]
  - Muscular weakness [None]
  - Diarrhoea [None]
  - Nerve injury [None]
  - Lumbosacral plexopathy [None]

NARRATIVE: CASE EVENT DATE: 20241003
